FAERS Safety Report 13309378 (Version 5)
Quarter: 2017Q2

REPORT INFORMATION
  Report Type: Report from Study
  Country: BR (occurrence: BR)
  Receive Date: 20170309
  Receipt Date: 20170411
  Transmission Date: 20170830
  Serious: Yes (Hospitalization, Disabling, Other)
  Sender: FDA-Public Use
  Company Number: BR-ALEXION PHARMACEUTICALS INC.-A201702220

PATIENT
  Sex: Male

DRUGS (2)
  1. SOLIRIS [Suspect]
     Active Substance: ECULIZUMAB
     Dosage: 900 MG, Q2W
     Route: 042
     Dates: start: 20140123
  2. SOLIRIS [Suspect]
     Active Substance: ECULIZUMAB
     Indication: PAROXYSMAL NOCTURNAL HAEMOGLOBINURIA
     Dosage: 600 MG, QW
     Route: 042
     Dates: start: 20131223, end: 20140116

REACTIONS (10)
  - Pleural effusion [Not Recovered/Not Resolved]
  - Chromaturia [Unknown]
  - Ascites [Not Recovered/Not Resolved]
  - Haemoglobin decreased [Unknown]
  - Haemolysis [Unknown]
  - Cholelithiasis [Unknown]
  - Abdominal pain [Recovering/Resolving]
  - Laboratory test abnormal [Unknown]
  - Dizziness [Not Recovered/Not Resolved]
  - Inappropriate schedule of drug administration [Recovered/Resolved]
